FAERS Safety Report 12089163 (Version 3)
Quarter: 2016Q1

REPORT INFORMATION
  Report Type: Report from Study
  Country: BR (occurrence: BR)
  Receive Date: 20160218
  Receipt Date: 20160318
  Transmission Date: 20160526
  Serious: Yes (Other)
  Sender: FDA-Public Use
  Company Number: BR-SA-2016SA030121

PATIENT
  Age: 49 Year
  Sex: Female

DRUGS (1)
  1. CEREZYME [Suspect]
     Active Substance: IMIGLUCERASE
     Dosage: 400 U LYOPHILIZED POWDER AT A DOSE OF 8 VIALS
     Route: 041
     Dates: start: 20040205

REACTIONS (3)
  - Dizziness [Not Recovered/Not Resolved]
  - Foot fracture [Recovering/Resolving]
  - Road traffic accident [Not Recovered/Not Resolved]

NARRATIVE: CASE EVENT DATE: 20160205
